FAERS Safety Report 11927835 (Version 1)
Quarter: 2016Q1

REPORT INFORMATION
  Report Type: Spontaneous
  Country: NL (occurrence: NL)
  Receive Date: 20160119
  Receipt Date: 20160119
  Transmission Date: 20160526
  Serious: Yes (Other)
  Sender: FDA-Public Use
  Company Number: NL-BAYER-2015-386035

PATIENT
  Age: 56 Year
  Sex: Female

DRUGS (2)
  1. MIRENA [Suspect]
     Active Substance: LEVONORGESTREL
     Indication: HEADACHE
     Dosage: UNK
  2. MIRENA [Suspect]
     Active Substance: LEVONORGESTREL
     Indication: MENSTRUAL DISORDER
     Dosage: 20 MCG/24HR, CONT
     Route: 015
     Dates: start: 2003, end: 20150522

REACTIONS (10)
  - Abdominal pain lower [Recovered/Resolved]
  - Off label use of device [None]
  - Dyspareunia [Recovered/Resolved]
  - Uterine disorder [None]
  - Device breakage [Recovered/Resolved]
  - Device physical property issue [None]
  - Device use error [Recovered/Resolved]
  - Arthralgia [Recovered/Resolved]
  - Breast cancer [None]
  - Complication of device removal [Recovered/Resolved]

NARRATIVE: CASE EVENT DATE: 2003
